FAERS Safety Report 18601798 (Version 3)
Quarter: 2021Q2

REPORT INFORMATION
  Report Type: Spontaneous
  Country: US (occurrence: US)
  Receive Date: 20201210
  Receipt Date: 20210513
  Transmission Date: 20210717
  Serious: No
  Sender: FDA-Public Use
  Company Number: US-PFIZER INC-2020484210

PATIENT
  Age: 43 Year
  Sex: Female

DRUGS (2)
  1. IBRANCE [Suspect]
     Active Substance: PALBOCICLIB
     Dosage: 125 MG, 1X/DAY (AT NIGHT)
  2. IBRANCE [Suspect]
     Active Substance: PALBOCICLIB
     Indication: BREAST CANCER FEMALE
     Dosage: 125 MG, CYCLIC (DAYS 1?21, THEN 7 DAYS OFF)
     Dates: start: 20201202

REACTIONS (8)
  - Neutrophil count decreased [Recovering/Resolving]
  - Blood pressure increased [Unknown]
  - Asthenia [Unknown]
  - Nausea [Unknown]
  - Paraesthesia [Unknown]
  - White blood cell count decreased [Recovering/Resolving]
  - Fatigue [Not Recovered/Not Resolved]
  - Hypertension [Unknown]
